FAERS Safety Report 11706559 (Version 1)
Quarter: 2015Q4

REPORT INFORMATION
  Report Type: Spontaneous
  Country: FR (occurrence: FR)
  Receive Date: 20151106
  Receipt Date: 20151106
  Transmission Date: 20160304
  Serious: Yes (Hospitalization)
  Sender: FDA-Public Use
  Company Number: FR-JNJFOC-20151022182

PATIENT
  Age: 70 Year
  Sex: Female

DRUGS (6)
  1. XEROQUEL [Suspect]
     Active Substance: QUETIAPINE FUMARATE
     Indication: BIPOLAR DISORDER
     Route: 048
  2. DEPAKOTE [Suspect]
     Active Substance: DIVALPROEX SODIUM
     Indication: BIPOLAR DISORDER
     Route: 048
  3. LYSANXIA [Suspect]
     Active Substance: PRAZEPAM
     Indication: BIPOLAR DISORDER
     Route: 048
  4. XANAX [Suspect]
     Active Substance: ALPRAZOLAM
     Indication: BIPOLAR DISORDER
     Route: 065
  5. FLUVOXAMINE [Concomitant]
     Active Substance: FLUVOXAMINE
     Indication: BIPOLAR DISORDER
     Route: 065
     Dates: start: 201509, end: 20151012
  6. HALDOL [Suspect]
     Active Substance: HALOPERIDOL
     Indication: CONFUSIONAL STATE
     Dosage: 4 MG A DAY IN 4 INTAKES
     Route: 048
     Dates: start: 201510, end: 20151019

REACTIONS (5)
  - Hypoglycaemia [Not Recovered/Not Resolved]
  - Thrombocytopenia [Not Recovered/Not Resolved]
  - Off label use [Unknown]
  - Product use issue [Unknown]
  - Anal sphincter atony [Not Recovered/Not Resolved]

NARRATIVE: CASE EVENT DATE: 20151014
